FAERS Safety Report 11399457 (Version 1)
Quarter: 2015Q3

REPORT INFORMATION
  Report Type: Spontaneous
  Country: US (occurrence: None)
  Receive Date: 20150818
  Receipt Date: 20150818
  Transmission Date: 20151125
  Serious: No
  Sender: FDA-Public Use
  Company Number: None

PATIENT
  Age: 17 Year
  Sex: Female

DRUGS (1)
  1. OMNITROPE [Suspect]
     Active Substance: SOMATROPIN
     Indication: GONADAL DYSGENESIS
     Route: 058
     Dates: start: 20130120

REACTIONS (3)
  - Incorrect dose administered [None]
  - Device failure [None]
  - Device issue [None]
